FAERS Safety Report 5255699-7 (Version None)
Quarter: 2007Q1

REPORT INFORMATION
  Report Type: 
  Country: None (occurrence: None)
  Receive Date: 20070305
  Receipt Date: 20070221
  Transmission Date: 20070707
  Serious: Yes (Hospitalization)
  Sender: FDA-Public Use
  Company Number: RO-PFIZER INC-2007014381

PATIENT
  Sex: Female
  Weight: 48 kg

DRUGS (2)
  1. SU-011,248 [Suspect]
     Indication: RENAL CELL CARCINOMA STAGE UNSPECIFIED
     Route: 048
     Dates: start: 20070125, end: 20070221
  2. DIHYDROCODEINE BITARTRATE INJ [Concomitant]
     Route: 048

REACTIONS (1)
  - INFECTION [None]
